FAERS Safety Report 17105127 (Version 1)
Quarter: 2019Q4

REPORT INFORMATION
  Report Type: Report from Study
  Country: JP (occurrence: JP)
  Receive Date: 20191203
  Receipt Date: 20191203
  Transmission Date: 20200122
  Serious: Yes (Other)
  Sender: FDA-Public Use
  Company Number: JP-BEH-2019110124

PATIENT
  Age: 2 Year
  Sex: Male
  Weight: 9.4 kg

DRUGS (10)
  1. IDELVION [Suspect]
     Active Substance: COAGULATION FACTOR IX RECOMBINANT HUMAN
     Dosage: 500 INTERNATIONAL UNIT, 1 DAY
     Route: 042
     Dates: start: 20190416, end: 20190416
  2. IDELVION [Suspect]
     Active Substance: COAGULATION FACTOR IX RECOMBINANT HUMAN
     Indication: FACTOR IX DEFICIENCY
     Dosage: 500 INTERNATIONAL UNIT, 1 DAY
     Route: 042
     Dates: start: 20181021, end: 20181021
  3. IDELVION [Suspect]
     Active Substance: COAGULATION FACTOR IX RECOMBINANT HUMAN
     Dosage: 500 INTERNATIONAL UNIT, 1 DAY
     Route: 042
     Dates: start: 20190416, end: 20190416
  4. IDELVION [Suspect]
     Active Substance: COAGULATION FACTOR IX RECOMBINANT HUMAN
     Dosage: 500 INTERNATIONAL UNIT, 1 DAY
     Route: 042
     Dates: start: 20190419, end: 20190419
  5. IDELVION [Suspect]
     Active Substance: COAGULATION FACTOR IX RECOMBINANT HUMAN
     Indication: FACTOR IX DEFICIENCY
     Dosage: 500 INTERNATIONAL UNIT, 1 DAY
     Route: 042
     Dates: start: 20181021, end: 20181021
  6. IDELVION [Suspect]
     Active Substance: COAGULATION FACTOR IX RECOMBINANT HUMAN
     Indication: PROPHYLAXIS
     Dosage: 500 INTERNATIONAL UNIT, 1 WEEK
     Route: 042
     Dates: start: 20181026, end: 20190412
  7. IDELVION [Suspect]
     Active Substance: COAGULATION FACTOR IX RECOMBINANT HUMAN
     Indication: PROCOAGULANT THERAPY
     Dosage: 500 INTERNATIONAL UNIT, ONCE EVERY DAY TO 8 DAYS
     Route: 042
     Dates: start: 20171020, end: 20181019
  8. IDELVION [Suspect]
     Active Substance: COAGULATION FACTOR IX RECOMBINANT HUMAN
     Indication: PROPHYLAXIS
     Dosage: 500 INTERNATIONAL UNIT, 1 WEEK
     Route: 042
     Dates: start: 20181026, end: 20190412
  9. IDELVION [Suspect]
     Active Substance: COAGULATION FACTOR IX RECOMBINANT HUMAN
     Indication: PROCOAGULANT THERAPY
     Dosage: 500 INTERNATIONAL UNIT, ONCE EVERY DAY TO 8 DAYS
     Route: 042
     Dates: start: 20171020, end: 20181019
  10. IDELVION [Suspect]
     Active Substance: COAGULATION FACTOR IX RECOMBINANT HUMAN
     Dosage: 500 INTERNATIONAL UNIT, 1 DAY
     Route: 042
     Dates: start: 20190419, end: 20190419

REACTIONS (1)
  - Haemorrhage [Recovered/Resolved]

NARRATIVE: CASE EVENT DATE: 20181205
